FAERS Safety Report 26070335 (Version 2)
Quarter: 2025Q4

REPORT INFORMATION
  Report Type: Spontaneous
  Country: JP (occurrence: JP)
  Receive Date: 20251120
  Receipt Date: 20251209
  Transmission Date: 20260117
  Serious: Yes (Other)
  Sender: OTSUKA
  Company Number: JP-MMM-Otsuka-7QGFEIOW

PATIENT
  Age: 96 Year
  Sex: Male

DRUGS (6)
  1. REXULTI [Suspect]
     Active Substance: BREXPIPRAZOLE
     Indication: Dementia Alzheimer^s type
     Dosage: 0.5 MG, DAILY
     Dates: start: 20251010, end: 20251107
  2. REXULTI [Suspect]
     Active Substance: BREXPIPRAZOLE
     Indication: Agitation
  3. QUETIAPINE FUMARATE [Concomitant]
     Active Substance: QUETIAPINE FUMARATE
     Indication: Agitation
     Dosage: 12.5 MG, DAILY
  4. Risperdal OD Tablets 0.5 mg [Concomitant]
     Indication: Agitation
     Dosage: UNK
  5. Risperdal OD Tablets 0.5 mg [Concomitant]
     Dosage: 0.5 MG/DAY (AS NEEDED)
     Dates: start: 202510
  6. DAYVIGO [Concomitant]
     Active Substance: LEMBOREXANT
     Indication: Product used for unknown indication
     Dosage: 5 MG, DAILY

REACTIONS (2)
  - Hallucination [Recovering/Resolving]
  - Agitation [Recovering/Resolving]

NARRATIVE: CASE EVENT DATE: 20251107
